FAERS Safety Report 8055632-9 (Version None)
Quarter: 2012Q1

REPORT INFORMATION
  Report Type: 
  Country: None (occurrence: None)
  Receive Date: 20120112
  Receipt Date: 20111228
  Transmission Date: 20120608
  Serious: Yes (Other)
  Sender: FDA-Public Use
  Company Number: FK201103125

PATIENT
  Age: 60 Year
  Sex: Male

DRUGS (8)
  1. LENALIDOMIDE [Concomitant]
  2. THALIDOMIDE [Concomitant]
  3. PREDNISONE TAB [Concomitant]
  4. BORTEZOMIB [Concomitant]
  5. GLUCOCORTICOSTEROIDS (GLUCOCOTICOSTEROIDS) [Concomitant]
  6. PAMIDRONATE DISODIUM [Suspect]
     Indication: PRODUCT USED FOR UNKNOWN INDICATION
     Dosage: 90 MG, MONTHLY, INTRAVENOUS (NOT OTHERWISE SPECIFIED)
     Route: 042
  7. ZOLEDRONIC ACID [Suspect]
     Dosage: MONTHLY INFUSIONS
  8. MELPHALAN HYDROCHLORIDE [Concomitant]

REACTIONS (4)
  - FOOT FRACTURE [None]
  - PERIPHERAL COLDNESS [None]
  - HYPOAESTHESIA [None]
  - PARAESTHESIA [None]
